FAERS Safety Report 10522566 (Version 4)
Quarter: 2014Q4

REPORT INFORMATION
  Report Type: Spontaneous
  Country: US (occurrence: US)
  Receive Date: 20141016
  Receipt Date: 20141209
  Transmission Date: 20150528
  Serious: Yes (Other)
  Sender: FDA-Public Use
  Company Number: US-009507513-1410USA004856

PATIENT
  Age: 26 Year
  Sex: Female
  Weight: 260.2 kg

DRUGS (1)
  1. NEXPLANON [Suspect]
     Active Substance: ETONOGESTREL
     Indication: CONTRACEPTION
     Dosage: ONE 68 MG NEXPLANON ROD/ EVERY THREE YEARS
     Route: 059
     Dates: start: 20140916, end: 20141007

REACTIONS (7)
  - Peripheral swelling [Recovered/Resolved]
  - Erythema [Recovered/Resolved]
  - Implant site discharge [Unknown]
  - Pain in extremity [Recovered/Resolved]
  - Implant site discharge [Recovered/Resolved]
  - Implant site cellulitis [Unknown]
  - Implant site abscess [Recovered/Resolved]

NARRATIVE: CASE EVENT DATE: 20140920
